FAERS Safety Report 8784610 (Version 1)
Quarter: 2012Q4

REPORT INFORMATION
  Report Type: Spontaneous
  Country: US (occurrence: None)
  Receive Date: 20120906
  Receipt Date: 20120906
  Transmission Date: 20130627
  Serious: Yes (Other)
  Sender: FDA-Public Use
  Company Number: None

PATIENT
  Age: 73 Year
  Sex: Male
  Weight: 80 kg

DRUGS (1)
  1. ALFUZOSIN (GENERIC) 10 MG SUN PHARMACEUTICALS [Suspect]
     Indication: URINARY TRACT OBSTRUCTION
     Dosage: 10mg daily pc dinner PO
     Route: 048
     Dates: start: 20120416, end: 20120417

REACTIONS (4)
  - Palpitations [None]
  - Supraventricular extrasystoles [None]
  - Atrial flutter [None]
  - Product substitution issue [None]
